FAERS Safety Report 18328744 (Version 1)
Quarter: 2020Q3

REPORT INFORMATION
  Report Type: Spontaneous
  Country: US (occurrence: US)
  Receive Date: 20200929
  Receipt Date: 20200929
  Transmission Date: 20201103
  Serious: No
  Sender: FDA-Public Use
  Company Number: None

PATIENT
  Age: 79 Year
  Sex: Female
  Weight: 54.43 kg

DRUGS (1)
  1. STELARA [Suspect]
     Active Substance: USTEKINUMAB
     Indication: CROHN^S DISEASE
     Dates: start: 20200806

REACTIONS (5)
  - Balance disorder [None]
  - Vision blurred [None]
  - Swollen tongue [None]
  - Dyspnoea [None]
  - Swelling face [None]

NARRATIVE: CASE EVENT DATE: 202008
